FAERS Safety Report 5373311-3 (Version None)
Quarter: 2007Q2

REPORT INFORMATION
  Report Type: 
  Country: None (occurrence: None)
  Receive Date: 20070626
  Receipt Date: 20070626
  Transmission Date: 20071010
  Serious: Yes (Other)
  Sender: FDA-Public Use
  Company Number: None

PATIENT
  Sex: Male

DRUGS (1)
  1. NEXAVAR [Suspect]
     Dosage: 400MG BID PO
     Route: 048
     Dates: start: 20070516, end: 20070527

REACTIONS (5)
  - ALOPECIA [None]
  - ANOREXIA [None]
  - HYPERTENSION [None]
  - PYREXIA [None]
  - SKIN EXFOLIATION [None]
